FAERS Safety Report 7988555-1 (Version None)
Quarter: 2011Q4

REPORT INFORMATION
  Report Type: 
  Country: None (occurrence: None)
  Receive Date: 20111218
  Receipt Date: 20100621
  Transmission Date: 20120403
  Serious: Yes (Other)
  Sender: FDA-Public Use
  Company Number: PHHY2010CA092794

PATIENT

DRUGS (4)
  1. ALISKIREN [Suspect]
     Dosage: 300 MG, UNK
  2. CALCIUM CHANNEL BLOCKERS [Concomitant]
  3. BETA BLOCKING AGENTS [Concomitant]
  4. DIURETICS [Concomitant]

REACTIONS (2)
  - BLOOD PRESSURE INCREASED [None]
  - URINE ALBUMIN/CREATININE RATIO INCREASED [None]
